FAERS Safety Report 4299662-1 (Version None)
Quarter: 2004Q1

REPORT INFORMATION
  Report Type: 
  Country: None (occurrence: None)
  Receive Date: 20040217
  Receipt Date: 20040204
  Transmission Date: 20041129
  Serious: Yes (Life-Threatening, Hospitalization)
  Sender: FDA-Public Use
  Company Number: 03P-114-0236309-00

PATIENT
  Age: 77 Year
  Sex: Male

DRUGS (4)
  1. DEPAKENE [Suspect]
     Indication: ANTISOCIAL BEHAVIOUR
     Dosage: 300 MG, 1 IN 1 D;  600 MG, 1 IN 1 D
     Dates: start: 20030812, end: 20030814
  2. DEPAKENE [Suspect]
     Indication: ANTISOCIAL BEHAVIOUR
     Dosage: 300 MG, 1 IN 1 D;  600 MG, 1 IN 1 D
     Dates: start: 20030814
  3. NORTRIPTYLINE HCL [Suspect]
     Indication: DEPRESSION
     Dosage: 100 MG, 1 IN 1 D;  75 MG, 1 IN 1 D
     Dates: start: 20030619, end: 20030826
  4. NORTRIPTYLINE HCL [Suspect]
     Indication: DEPRESSION
     Dosage: 100 MG, 1 IN 1 D;  75 MG, 1 IN 1 D
     Dates: start: 20030826

REACTIONS (6)
  - DRUG INTERACTION [None]
  - FALL [None]
  - MYOCARDIAL INFARCTION [None]
  - ORTHOSTATIC HYPOTENSION [None]
  - SPEECH DISORDER [None]
  - TRANSIENT ISCHAEMIC ATTACK [None]
